FAERS Safety Report 8287029-0 (Version None)
Quarter: 2012Q2

REPORT INFORMATION
  Report Type: 
  Country: None (occurrence: None)
  Receive Date: 20120416
  Receipt Date: 20120406
  Transmission Date: 20120825
  Serious: Yes (Death, Other)
  Sender: FDA-Public Use
  Company Number: US-ROCHE-1019164

PATIENT
  Sex: Male
  Weight: 110 kg

DRUGS (15)
  1. CLINDAMYCIN [Concomitant]
  2. SPIRONOLACTONE [Concomitant]
     Route: 048
  3. PEGASYS [Suspect]
     Indication: HEPATITIS C
     Route: 058
     Dates: start: 20111021
  4. GUAIFENESIN [Concomitant]
     Route: 048
  5. METOPROLOL SUCCINATE [Concomitant]
     Route: 048
  6. ERYTHROMYCIN [Concomitant]
     Route: 048
  7. OMEPRAZOLE [Concomitant]
     Route: 048
  8. THYMOL [Concomitant]
  9. TELAPREVIR [Suspect]
     Indication: HEPATITIS C
     Route: 048
  10. DIOVAN [Concomitant]
     Route: 048
  11. FUROSEMIDE [Concomitant]
     Route: 048
  12. ACETAMINOPHEN [Concomitant]
     Route: 048
  13. CLOTRIMAZOLE [Concomitant]
  14. COPEGUS [Suspect]
     Indication: HEPATITIS C
     Route: 048
     Dates: start: 20111010
  15. HYDROCORTISONE [Concomitant]

REACTIONS (2)
  - MULTI-ORGAN FAILURE [None]
  - SEPSIS [None]
